FAERS Safety Report 7971770-0 (Version None)
Quarter: 2011Q4

REPORT INFORMATION
  Report Type: 
  Country: None (occurrence: None)
  Receive Date: 20111212
  Receipt Date: 20111201
  Transmission Date: 20120403
  Serious: Yes (Other)
  Sender: FDA-Public Use
  Company Number: US-BAYER-2011-082544

PATIENT
  Age: 24 Year
  Sex: Female
  Weight: 56.689 kg

DRUGS (2)
  1. AMBIEN [Concomitant]
     Dosage: 5 MG, UNK
     Route: 048
  2. YAZ [Suspect]
     Indication: CONTRACEPTION
     Dosage: UNK
     Dates: start: 20080101, end: 20090101

REACTIONS (2)
  - CHOLELITHIASIS [None]
  - CHOLECYSTECTOMY [None]
